FAERS Safety Report 9714142 (Version 2)
Quarter: 2015Q3

REPORT INFORMATION
  Report Type: Spontaneous
  Country: US (occurrence: US)
  Receive Date: 20131126
  Receipt Date: 20150803
  Transmission Date: 20151125
  Serious: No
  Sender: FDA-Public Use
  Company Number: US-GILEAD-2008-0019047

PATIENT
  Age: 47 Year
  Sex: Female
  Weight: 60.33 kg

DRUGS (4)
  1. BUMEX [Concomitant]
     Active Substance: BUMETANIDE
  2. LETAIRIS [Suspect]
     Active Substance: AMBRISENTAN
     Indication: PULMONARY ARTERIAL HYPERTENSION
     Route: 048
     Dates: start: 20081015
  3. PARACETAMOL/HYDROCODONE BITARTRATE [Concomitant]
  4. OXYGEN. [Concomitant]
     Active Substance: OXYGEN

REACTIONS (1)
  - Oedema peripheral [None]
